FAERS Safety Report 5671212-4 (Version None)
Quarter: 2008Q1

REPORT INFORMATION
  Report Type: 
  Country: None (occurrence: None)
  Receive Date: 20080313
  Receipt Date: 20080304
  Transmission Date: 20080703
  Serious: Yes (Other)
  Sender: FDA-Public Use
  Company Number: 163-20785-08030201

PATIENT
  Age: 47 Year
  Sex: Female

DRUGS (2)
  1. THALOMID [Suspect]
     Indication: AMYLOIDOSIS
     Dosage: 200 MG, HS, ORAL; 100 MG, HS, ORAL
     Route: 048
     Dates: start: 20070822, end: 20070101
  2. THALOMID [Suspect]
     Indication: AMYLOIDOSIS
     Dosage: 200 MG, HS, ORAL; 100 MG, HS, ORAL
     Route: 048
     Dates: start: 20071227

REACTIONS (1)
  - BLOOD HUMAN CHORIONIC GONADOTROPIN INCREASED [None]
